FAERS Safety Report 19217446 (Version 1)
Quarter: 2021Q2

REPORT INFORMATION
  Report Type: Spontaneous
  Country: SE (occurrence: SE)
  Receive Date: 20210505
  Receipt Date: 20210505
  Transmission Date: 20210717
  Serious: Yes (Life-Threatening, Hospitalization)
  Sender: FDA-Public Use
  Company Number: SE-PFIZER INC-2021446406

PATIENT
  Age: 72 Year
  Sex: Male

DRUGS (12)
  1. CILAXORAL [Concomitant]
     Active Substance: SODIUM PICOSULFATE
     Dosage: 1 DF, AS NEEDED
  2. ROZEX [METRONIDAZOLE] [Concomitant]
     Dosage: UNK
  3. MOVICOL [Concomitant]
     Active Substance: POLYETHYLENE GLYCOL 3350\POTASSIUM CHLORIDE\SODIUM BICARBONATE\SODIUM CHLORIDE
     Dosage: 1 DF, AS NEEDED
  4. ALVEDON FORTE [Concomitant]
     Active Substance: ACETAMINOPHEN
     Dosage: 1 DF, AS NEEDED
  5. FLUOROURACIL. [Concomitant]
     Active Substance: FLUOROURACIL
     Dosage: UNK
  6. BACLOFEN. [Concomitant]
     Active Substance: BACLOFEN
     Dosage: 1 DF, AS NEEDED
  7. ALVEDON [Concomitant]
     Active Substance: ACETAMINOPHEN
     Dosage: 1 DF, AS NEEDED
  8. LOPERAMIDE [Concomitant]
     Active Substance: LOPERAMIDE
     Dosage: 1 DF, AS NEEDED
  9. ONDANSETRON [Concomitant]
     Active Substance: ONDANSETRON
     Dosage: 1 DF, AS NEEDED
  10. HYDROCORTISONE TRIMB [Concomitant]
     Dosage: UNK
  11. BEVACIZUMAB. [Suspect]
     Active Substance: BEVACIZUMAB
     Indication: SMALL INTESTINE CARCINOMA
     Dosage: 300 MG (5 MG/KG)
     Route: 042
     Dates: start: 20200707, end: 20210309
  12. ANDOLEX [Concomitant]
     Dosage: UNK

REACTIONS (1)
  - Gastrointestinal perforation [Not Recovered/Not Resolved]

NARRATIVE: CASE EVENT DATE: 20210402
